FAERS Safety Report 25882060 (Version 1)
Quarter: 2025Q4

REPORT INFORMATION
  Report Type: Report from Study
  Country: GB (occurrence: GB)
  Receive Date: 20251006
  Receipt Date: 20251006
  Transmission Date: 20260118
  Serious: Yes (Hospitalization)
  Sender: ROCHE
  Company Number: GB-ROCHE-3402004

PATIENT
  Age: 22 Year
  Sex: Male

DRUGS (1)
  1. RISDIPLAM [Suspect]
     Active Substance: RISDIPLAM
     Indication: Product used for unknown indication
     Dosage: FREQUENCY TEXT:1
     Route: 065
     Dates: start: 20220629

REACTIONS (2)
  - Product dose omission in error [Unknown]
  - Petit mal epilepsy [Unknown]
